FAERS Safety Report 4784744-8 (Version None)
Quarter: 2005Q3

REPORT INFORMATION
  Report Type: 
  Country: None (occurrence: None)
  Receive Date: 20050930
  Receipt Date: 20050920
  Transmission Date: 20060218
  Serious: Yes (Other)
  Sender: FDA-Public Use
  Company Number: US-ROCHE-418148

PATIENT
  Age: 56 Year
  Sex: Male

DRUGS (5)
  1. CAPECITABINE [Suspect]
     Dosage: 14 DAYS PER CYCLE
     Route: 048
     Dates: start: 20050217, end: 20050316
  2. CARBOPLATIN [Suspect]
     Dosage: DOSE = 2 AUC
     Route: 042
     Dates: start: 20050217, end: 20050309
  3. CARBOPLATIN [Suspect]
     Dosage: DOSE = 1 AUC
     Route: 042
     Dates: start: 20050323
  4. PHENYTOIN [Interacting]
     Indication: CLOSED HEAD INJURY
     Dosage: STARTED 18 YEARS AGO
     Route: 065
     Dates: end: 20050323
  5. PHENYTOIN [Interacting]
     Route: 065

REACTIONS (3)
  - DRUG INTERACTION [None]
  - DRUG TOXICITY [None]
  - NEUROPATHY PERIPHERAL [None]
